FAERS Safety Report 13736129 (Version 4)
Quarter: 2017Q3

REPORT INFORMATION
  Report Type: Spontaneous
  Country: DE (occurrence: DE)
  Receive Date: 20170710
  Receipt Date: 20170810
  Transmission Date: 20171127
  Serious: Yes (Hospitalization, Other)
  Sender: FDA-Public Use
  Company Number: DE-NOVOPROD-552729

PATIENT
  Age: 81 Year
  Sex: Male
  Weight: 98 kg

DRUGS (19)
  1. KINZALMONO [Concomitant]
     Active Substance: TELMISARTAN
     Dosage: 40 MG, QD (0.50 DF)
  2. XARELTO [Concomitant]
     Active Substance: RIVAROXABAN
     Dosage: 20 MG, QD
     Route: 065
  3. LACTOSEVEN [Concomitant]
     Route: 065
  4. METOPROLOL                         /00376902/ [Concomitant]
     Active Substance: METOPROLOL
     Dosage: 57.5 MG
  5. METHOHEXITAL [Concomitant]
     Active Substance: METHOHEXITAL
     Dosage: 47.5 MG, QD (0.50, DF)
     Route: 065
  6. TEBONIN                            /01003103/ [Concomitant]
     Route: 065
  7. HYALURON FORTE HA [Concomitant]
     Route: 065
  8. CORIFEO [Concomitant]
     Dosage: 20 MG (MORNING)
     Route: 048
     Dates: start: 2011
  9. INSPRA [Concomitant]
     Active Substance: EPLERENONE
     Dosage: 50 MG, QD
     Route: 048
  10. TELMISARTAN. [Concomitant]
     Active Substance: TELMISARTAN
     Dosage: 40 MG
  11. TORASEMID [Concomitant]
     Active Substance: TORSEMIDE
     Dosage: 10 MG
     Route: 048
  12. PROTAPHANE [Suspect]
     Active Substance: INSULIN HUMAN
     Indication: TYPE 2 DIABETES MELLITUS
     Dosage: 3 UPTO 12 DEPENDING FROM MEASURED RESULTS
     Route: 065
  13. NOVORAPID [Suspect]
     Active Substance: INSULIN ASPART
     Indication: PRODUCT USED FOR UNKNOWN INDICATION
     Dosage: UNK
     Route: 065
     Dates: start: 2007
  14. XIPAMID [Concomitant]
     Active Substance: XIPAMIDE
     Dosage: 10 MG, QD
     Route: 048
  15. SIMVASTATIN. [Concomitant]
     Active Substance: SIMVASTATIN
     Dosage: 10 MG, QD (EVENING)
     Route: 048
  16. PANPUR                             /00014701/ [Concomitant]
     Dosage: FOR MEALS
     Route: 065
  17. ACTRAPID [Suspect]
     Active Substance: INSULIN HUMAN
     Indication: TYPE 2 DIABETES MELLITUS
     Dosage: UNK, USED FOR 30 YEARS
     Route: 065
     Dates: start: 1977
  18. CORIFEO [Concomitant]
     Dosage: 10 MG, QD (MORNING)
     Route: 048
  19. KALINOR                            /00031402/ [Concomitant]
     Active Substance: POTASSIUM CITRATE
     Route: 065

REACTIONS (4)
  - Foot fracture [Recovered/Resolved]
  - Hypoglycaemic unconsciousness [Recovered/Resolved]
  - Haemorrhage [Unknown]
  - Incorrect dose administered [Unknown]

NARRATIVE: CASE EVENT DATE: 2007
